FAERS Safety Report 4937262-8 (Version None)
Quarter: 2006Q1

REPORT INFORMATION
  Report Type: 
  Country: None (occurrence: None)
  Receive Date: 20060302
  Receipt Date: 20060210
  Transmission Date: 20060701
  Serious: Yes (Other)
  Sender: FDA-Public Use
  Company Number: CA200602001554

PATIENT
  Age: 11 Year
  Sex: Male

DRUGS (2)
  1. STRATTERA [Suspect]
     Dosage: SEE IMAGE
     Dates: start: 20050526, end: 20050608
  2. STRATTERA [Suspect]
     Dosage: SEE IMAGE
     Dates: start: 20050609

REACTIONS (1)
  - INTENTIONAL SELF-INJURY [None]
